FAERS Safety Report 13136163 (Version 2)
Quarter: 2017Q1

REPORT INFORMATION
  Report Type: Spontaneous
  Country: US (occurrence: US)
  Receive Date: 20170121
  Receipt Date: 20170209
  Transmission Date: 20170428
  Serious: Yes (Death, Other)
  Sender: FDA-Public Use
  Company Number: US-ACCORD-047534

PATIENT
  Age: 49 Year
  Sex: Male

DRUGS (2)
  1. CYTARABINE/CYTARABINE HYDROCHLORIDE/CYTARABINE OCFOSFATE [Concomitant]
     Indication: ACUTE MYELOID LEUKAEMIA
  2. METHOTREXATE. [Suspect]
     Active Substance: METHOTREXATE
     Indication: ACUTE MYELOID LEUKAEMIA
     Route: 037

REACTIONS (3)
  - Myelopathy [Fatal]
  - Off label use [Unknown]
  - Urinary retention [Unknown]
